FAERS Safety Report 9036464 (Version 1)
Quarter: 2013Q1

REPORT INFORMATION
  Report Type: Spontaneous
  Country: US (occurrence: None)
  Receive Date: 20130117
  Receipt Date: 20130117
  Transmission Date: 20140127
  Serious: Yes (Other)
  Sender: FDA-Public Use
  Company Number: None

PATIENT
  Age: 39 Year
  Sex: Male
  Weight: 90.72 kg

DRUGS (2)
  1. TRAZODONE [Suspect]
     Indication: INSOMNIA
     Route: 048
     Dates: start: 20090201, end: 20121201
  2. TRAZODONE [Suspect]
     Indication: DEPRESSION
     Route: 048
     Dates: start: 20090201, end: 20121201

REACTIONS (2)
  - Tinnitus [None]
  - Hypoacusis [None]
